FAERS Safety Report 5626409-6 (Version None)
Quarter: 2008Q1

REPORT INFORMATION
  Report Type: 
  Country: None (occurrence: None)
  Receive Date: 20080214
  Receipt Date: 20080206
  Transmission Date: 20080703
  Serious: Yes (Other)
  Sender: FDA-Public Use
  Company Number: DK-ASTRAZENECA-2008SE00772

PATIENT
  Sex: Female

DRUGS (1)
  1. RHINOCRT AQUA [Suspect]
     Route: 045

REACTIONS (1)
  - GLAUCOMA [None]
